FAERS Safety Report 5793947-5 (Version None)
Quarter: 2008Q2

REPORT INFORMATION
  Report Type: 
  Country: None (occurrence: None)
  Receive Date: 20080627
  Receipt Date: 20080624
  Transmission Date: 20081010
  Serious: Yes (Death)
  Sender: FDA-Public Use
  Company Number: IN-GENENTECH-263384

PATIENT
  Age: 70 Year
  Sex: Male

DRUGS (1)
  1. METALYSE [Suspect]
     Indication: ACUTE MYOCARDIAL INFARCTION
     Dosage: 35 MG, UNK
     Route: 042
     Dates: start: 20080617, end: 20080617

REACTIONS (1)
  - DEATH [None]
